FAERS Safety Report 5502732-0 (Version None)
Quarter: 2007Q4

REPORT INFORMATION
  Report Type: 
  Country: None (occurrence: None)
  Receive Date: 20071031
  Receipt Date: 20071023
  Transmission Date: 20080405
  Serious: Yes (Death)
  Sender: FDA-Public Use
  Company Number: GB-ELI_LILLY_AND_COMPANY-GB200710006567

PATIENT
  Age: 34 Year
  Sex: Male

DRUGS (4)
  1. OLANZAPINE [Suspect]
     Dosage: 12.5 MG, DAILY (1/D)
  2. CLOZAPINE [Concomitant]
     Dosage: 200 MG, UNK
  3. DIAZEPAM [Concomitant]
  4. LANSOPRAZOLE [Concomitant]

REACTIONS (4)
  - INTESTINAL ISCHAEMIA [None]
  - MULTI-ORGAN FAILURE [None]
  - NECROTISING COLITIS [None]
  - SEPTIC SHOCK [None]
